FAERS Safety Report 4915713-2 (Version None)
Quarter: 2006Q1

REPORT INFORMATION
  Report Type: 
  Country: None (occurrence: None)
  Receive Date: 20060214
  Receipt Date: 20060201
  Transmission Date: 20060701
  Serious: Yes (Other)
  Sender: FDA-Public Use
  Company Number: 2006016469

PATIENT
  Age: 54 Year
  Sex: Female

DRUGS (1)
  1. DETROL LA [Suspect]
     Indication: POLLAKIURIA

REACTIONS (5)
  - BLADDER DISORDER [None]
  - DRUG INEFFECTIVE [None]
  - DRY MOUTH [None]
  - FLUID RETENTION [None]
  - MICTURITION URGENCY [None]
